FAERS Safety Report 25641768 (Version 1)
Quarter: 2025Q3

REPORT INFORMATION
  Report Type: Spontaneous
  Country: EU (occurrence: EU)
  Receive Date: 20250804
  Receipt Date: 20250804
  Transmission Date: 20251020
  Serious: Yes (Death, Hospitalization, Other)
  Sender: JOHNSON AND JOHNSON
  Company Number: None

PATIENT
  Age: 47 Year
  Sex: Female
  Weight: 64 kg

DRUGS (44)
  1. IMODIUM [Suspect]
     Active Substance: LOPERAMIDE HYDROCHLORIDE
     Indication: Gastroenteritis rotavirus
     Dosage: 4 DOSAGE FORM, ONCE A DAY
     Dates: start: 19980405, end: 19980406
  2. CISAPRIDE [Suspect]
     Active Substance: CISAPRIDE
     Indication: Gastrointestinal disorder
     Route: 048
     Dates: start: 19980415, end: 19980416
  3. KONAKION [Suspect]
     Active Substance: PHYTONADIONE
     Indication: Vitamin supplementation
     Dosage: 15 DROP [DRP] (DROP (1/12 MILLILITRE))
     Dates: start: 19980409, end: 19980426
  4. KONAKION [Suspect]
     Active Substance: PHYTONADIONE
     Indication: Vitamin K deficiency
  5. AMPHO-MORONAL [Suspect]
     Active Substance: AMPHOTERICIN B
     Indication: Oesophageal candidiasis
     Dosage: 6 DOSAGE FORM, ONCE A DAY, AMPHO-MORONAL SUSPENSION
     Route: 048
     Dates: start: 19980406, end: 19980426
  6. CLOTRIMAZOLE [Suspect]
     Active Substance: CLOTRIMAZOLE
     Indication: Vulvovaginal candidiasis
     Route: 003
     Dates: start: 19980415, end: 19980426
  7. DIAZEPAM [Suspect]
     Active Substance: DIAZEPAM
     Indication: Oesophagogastroscopy
     Dosage: 10 MILLIGRAM, ONCE A DAY
     Dates: start: 19980415, end: 19980415
  8. OXAZEPAM [Suspect]
     Active Substance: OXAZEPAM
     Indication: Sleep disorder
     Route: 048
     Dates: start: 19980330, end: 19980401
  9. OXAZEPAM [Suspect]
     Active Substance: OXAZEPAM
     Route: 048
     Dates: start: 19980403, end: 19980406
  10. OXAZEPAM [Suspect]
     Active Substance: OXAZEPAM
     Route: 048
     Dates: start: 19980409, end: 19980416
  11. DIMENHYDRINATE [Suspect]
     Active Substance: DIMENHYDRINATE
     Indication: Nausea
     Route: 054
     Dates: start: 19980414, end: 19980414
  12. DIMENHYDRINATE [Suspect]
     Active Substance: DIMENHYDRINATE
     Indication: Product used for unknown indication
  13. FUROSEMIDE\SPIRONOLACTONE [Suspect]
     Active Substance: FUROSEMIDE\SPIRONOLACTONE
     Indication: Oedema
     Route: 048
     Dates: start: 19980323, end: 19980405
  14. FUROSEMIDE\SPIRONOLACTONE [Suspect]
     Active Substance: FUROSEMIDE\SPIRONOLACTONE
     Indication: Ascites
  15. LASIX [Suspect]
     Active Substance: FUROSEMIDE
     Indication: Oedema
     Route: 048
     Dates: start: 19980406, end: 19980426
  16. LASIX [Suspect]
     Active Substance: FUROSEMIDE
     Indication: Ascites
  17. NOVALGIN (METAMIZOLE SODIUM) [Suspect]
     Active Substance: METAMIZOLE SODIUM
     Indication: Pain
     Route: 048
     Dates: start: 19980403, end: 19980403
  18. CIPROFLOXACIN [Suspect]
     Active Substance: CIPROFLOXACIN
     Indication: Pyrexia
     Route: 048
     Dates: start: 19980404, end: 19980410
  19. CIPROFLOXACIN [Suspect]
     Active Substance: CIPROFLOXACIN
     Route: 048
     Dates: start: 19980417, end: 19980426
  20. SODIUM POLYSTYRENE SULFONATE [Suspect]
     Active Substance: SODIUM POLYSTYRENE SULFONATE
     Indication: Hyperkalaemia
     Route: 065
     Dates: start: 19980406, end: 19980406
  21. TRAMADOL [Suspect]
     Active Substance: TRAMADOL
     Indication: Pain
     Route: 048
     Dates: start: 19980409, end: 19980417
  22. ZYRTEC [Concomitant]
     Active Substance: CETIRIZINE HYDROCHLORIDE
     Indication: Rash macular
     Dates: start: 19980419, end: 19980426
  23. CARBAMAZEPINE [Concomitant]
     Active Substance: CARBAMAZEPINE
     Indication: Prophylaxis
     Dates: start: 19980312, end: 19980323
  24. POTASSIUM CHLORIDE [Concomitant]
     Active Substance: POTASSIUM CHLORIDE
     Indication: Hypokalaemia
     Route: 048
     Dates: start: 19980324, end: 19980329
  25. POTASSIUM CHLORIDE [Concomitant]
     Active Substance: POTASSIUM CHLORIDE
     Indication: Hypokalaemia
     Route: 048
     Dates: start: 19980331, end: 19980406
  26. POTASSIUM CHLORIDE [Concomitant]
     Active Substance: POTASSIUM CHLORIDE
     Route: 048
     Dates: start: 19980409, end: 19980411
  27. Kalinor [Concomitant]
     Indication: Hypokalaemia
     Dates: start: 19980323, end: 19980330
  28. FOLIC ACID [Concomitant]
     Active Substance: FOLIC ACID
     Indication: Folate deficiency
     Dosage: 5 MILLIGRAM
     Dates: start: 19980323, end: 19980426
  29. DIBUCAINE\POLICRESULEN [Concomitant]
     Active Substance: DIBUCAINE\POLICRESULEN
     Indication: Haemorrhoids
     Dates: start: 19980323, end: 19980426
  30. DIBUCAINE\POLICRESULEN [Concomitant]
     Active Substance: DIBUCAINE\POLICRESULEN
     Route: 061
  31. DIFLUCAN [Concomitant]
     Active Substance: FLUCONAZOLE
     Indication: Candida infection
     Dosage: 200 MILLIGRAM
     Dates: start: 19980417, end: 19980426
  32. CYTOBION [Concomitant]
     Indication: Vitamin supplementation
     Dosage: UNK
     Dates: start: 19980323, end: 19980417
  33. Clont [Concomitant]
     Indication: Pyrexia
     Dates: start: 19980323, end: 19980330
  34. AQUAPHOR [Concomitant]
     Active Substance: PETROLATUM
     Indication: Oedema
     Route: 048
     Dates: start: 19980323, end: 19980407
  35. AQUAPHOR [Concomitant]
     Active Substance: PETROLATUM
     Indication: Ascites
  36. ACETYLCYSTEINE [Concomitant]
     Active Substance: ACETYLCYSTEINE
     Indication: Product used for unknown indication
     Route: 048
     Dates: start: 19980323, end: 19980426
  37. LINOLA-FETT N [Concomitant]
     Indication: Product used for unknown indication
     Route: 003
  38. OMEPRAZOLE [Concomitant]
     Active Substance: OMEPRAZOLE
     Indication: Gastric ulcer
     Route: 048
     Dates: start: 19980323, end: 19980426
  39. OMEPRAZOLE [Concomitant]
     Active Substance: OMEPRAZOLE
     Indication: Gastric ulcer
  40. BETABION [Concomitant]
     Indication: Vitamin supplementation
     Route: 041
     Dates: start: 19980323, end: 19980426
  41. PARACTOL [Concomitant]
     Indication: Product used for unknown indication
     Route: 048
     Dates: start: 19980402, end: 19980402
  42. ACETAMINOPHEN [Concomitant]
     Active Substance: ACETAMINOPHEN
     Indication: Pyrexia
     Route: 054
     Dates: start: 19980416, end: 19980417
  43. ACETAMINOPHEN [Concomitant]
     Active Substance: ACETAMINOPHEN
     Route: 054
     Dates: start: 19980419, end: 19980419
  44. ATOSIL [Concomitant]
     Indication: Agitation
     Route: 048
     Dates: start: 19980417, end: 19980418

REACTIONS (6)
  - Toxic epidermal necrolysis [Fatal]
  - Vulvovaginal candidiasis [Unknown]
  - Pyrexia [Unknown]
  - Conjunctivitis [Unknown]
  - Mucosa vesicle [Unknown]
  - Mouth ulceration [Unknown]

NARRATIVE: CASE EVENT DATE: 19980416
